FAERS Safety Report 9288807 (Version 4)
Quarter: 2013Q3

REPORT INFORMATION
  Report Type: Report from Study
  Country: US (occurrence: US)
  Receive Date: 20130514
  Receipt Date: 20130926
  Transmission Date: 20140515
  Serious: Yes (Other)
  Sender: FDA-Public Use
  Company Number: US-ALEXION-A201301014

PATIENT
  Age: 50 Year
  Sex: Male

DRUGS (1)
  1. SOLIRIS [Suspect]
     Indication: PAROXYSMAL NOCTURNAL HAEMOGLOBINURIA
     Dosage: UNK
     Route: 042

REACTIONS (6)
  - Transfusion [Unknown]
  - Myelodysplastic syndrome [Unknown]
  - Haemoglobin decreased [Unknown]
  - Chromaturia [Unknown]
  - Gingival bleeding [Unknown]
  - Incorrect dose administered [Unknown]
